FAERS Safety Report 21117815 (Version 2)
Quarter: 2022Q3

REPORT INFORMATION
  Report Type: Spontaneous
  Country: JP (occurrence: JP)
  Receive Date: 20220722
  Receipt Date: 20220818
  Transmission Date: 20221027
  Serious: Yes (Other)
  Sender: FDA-Public Use
  Company Number: JP-SUN PHARMACEUTICAL INDUSTRIES LTD-2022R1-345701

PATIENT
  Age: 51 Year
  Sex: Male

DRUGS (4)
  1. OXALIPLATIN [Suspect]
     Active Substance: OXALIPLATIN
     Indication: Chemotherapy
     Dosage: 100 MILLIGRAM/SQ. METER, DAY 1
     Route: 065
  2. LEUCOVORIN CALCIUM [Suspect]
     Active Substance: LEUCOVORIN CALCIUM
     Indication: Chemotherapy
     Dosage: 100 MILLIGRAM/SQ. METER, DAYS 1 AND 2
     Route: 065
  3. BEVACIZUMAB [Suspect]
     Active Substance: BEVACIZUMAB
     Indication: Chemotherapy
     Dosage: 5 MG/KG: DAY 1,ADMINISTERED AT 2-WEEK INTERVALS
     Route: 065
  4. FLUOROURACIL [Suspect]
     Active Substance: FLUOROURACIL
     Indication: Chemotherapy
     Dosage: 600 MG/M2 22-HOUR CONTINUOUS INFUSION: DAYS 1 AND 2
     Route: 042

REACTIONS (3)
  - Stomal varices [Recovering/Resolving]
  - Thrombocytopenia [Recovered/Resolved]
  - Splenomegaly [Recovered/Resolved]
